FAERS Safety Report 12179742 (Version 1)
Quarter: 2016Q1

REPORT INFORMATION
  Report Type: Report from Study
  Country: BR (occurrence: BR)
  Receive Date: 20160314
  Receipt Date: 20160314
  Transmission Date: 20160526
  Serious: Yes (Hospitalization)
  Sender: FDA-Public Use
  Company Number: PHHY2016BR012394

PATIENT
  Sex: Female

DRUGS (1)
  1. EXJADE [Suspect]
     Active Substance: DEFERASIROX
     Indication: IRON OVERLOAD
     Dosage: 2 DF, QD (2 TABLETS OF 500 MG DAILY)
     Route: 048

REACTIONS (4)
  - Decreased immune responsiveness [Recovered/Resolved]
  - Platelet count decreased [Recovered/Resolved]
  - Dizziness [Recovered/Resolved]
  - Malaise [Recovering/Resolving]
